FAERS Safety Report 8266954-0 (Version None)
Quarter: 2012Q2

REPORT INFORMATION
  Report Type: 
  Country: None (occurrence: None)
  Receive Date: 20120404
  Receipt Date: 20120404
  Transmission Date: 20120825
  Serious: Yes (Other)
  Sender: FDA-Public Use
  Company Number: None

PATIENT
  Sex: Male
  Weight: 122.0176 kg

DRUGS (1)
  1. OMEPRAZOLE MAGNESIUM [Suspect]
     Indication: GASTROOESOPHAGEAL REFLUX DISEASE
     Dosage: 1/DAY DAILY ORAL 3-5 TO 3-9
     Route: 048

REACTIONS (4)
  - IMPAIRED DRIVING ABILITY [None]
  - PRODUCT CONTAMINATION PHYSICAL [None]
  - CONFUSIONAL STATE [None]
  - MENTAL IMPAIRMENT [None]
